FAERS Safety Report 24808849 (Version 1)
Quarter: 2025Q1

REPORT INFORMATION
  Report Type: Spontaneous
  Country: US (occurrence: US)
  Receive Date: 20250106
  Receipt Date: 20250106
  Transmission Date: 20250409
  Serious: No
  Sender: SUNOVION
  Company Number: US-SUMITOMO PHARMA SWITZERLAND GMBH-2024SPA006242

PATIENT

DRUGS (2)
  1. GEMTESA [Suspect]
     Active Substance: VIBEGRON
     Indication: Nocturia
     Route: 048
  2. MELATONIN [Suspect]
     Active Substance: MELATONIN
     Route: 065

REACTIONS (5)
  - Feeling abnormal [Unknown]
  - Nervous system disorder [Unknown]
  - Dissociation [Unknown]
  - Incorrect dosage administered [Unknown]
  - Drug ineffective [Unknown]
